FAERS Safety Report 6520424-6 (Version None)
Quarter: 2009Q4

REPORT INFORMATION
  Report Type: 
  Country: None (occurrence: None)
  Receive Date: 20091229
  Receipt Date: 20091214
  Transmission Date: 20100525
  Serious: Yes (Other)
  Sender: FDA-Public Use
  Company Number: GB-PFIZER INC-2009309623

PATIENT
  Age: 63 Year
  Sex: Male

DRUGS (5)
  1. ECALTA [Suspect]
     Indication: CANDIDIASIS
     Dosage: 100 MG, 1X/DAY
     Route: 042
     Dates: start: 20091126
  2. PARACETAMOL [Concomitant]
     Dosage: 1 G, 4X/DAY
     Route: 048
  3. ENOXAPARIN SODIUM [Concomitant]
  4. RANITIDINE [Concomitant]
     Dosage: 150 MG, 2X/DAY
     Route: 048
  5. LOPERAMIDE [Concomitant]
     Dosage: 2 MG, 4X/DAY
     Route: 048

REACTIONS (1)
  - EYE INFECTION FUNGAL [None]
